FAERS Safety Report 9128506 (Version 2)
Quarter: 2013Q1

REPORT INFORMATION
  Report Type: Spontaneous
  Country: US (occurrence: US)
  Receive Date: 20130228
  Receipt Date: 20130313
  Transmission Date: 20140127
  Serious: No
  Sender: FDA-Public Use
  Company Number: US-BAYER-2013-018736

PATIENT
  Age: 22 Year
  Sex: 0

DRUGS (1)
  1. GADAVIST [Suspect]
     Dosage: UNK
     Dates: start: 20121018, end: 20121018

REACTIONS (1)
  - Urticaria [None]
